FAERS Safety Report 4306480-4 (Version None)
Quarter: 2004Q1

REPORT INFORMATION
  Report Type: 
  Country: None (occurrence: None)
  Receive Date: 20040225
  Receipt Date: 20030818
  Transmission Date: 20041129
  Serious: No
  Sender: FDA-Public Use
  Company Number: US-BRISTOL-MYERS SQUIBB COMPANY-12357976

PATIENT
  Sex: Female

DRUGS (1)
  1. EXCEDRIN (MIGRAINE) [Suspect]
     Dosage: DOSE: TOOK 9, THEN LATER STATED SHE DIDN'T KNOW HOW MANY, ^TOOK WHAT EVER WAS IN HER HAND.^
     Route: 048
     Dates: start: 20030818

REACTIONS (3)
  - ABDOMINAL PAIN UPPER [None]
  - MEDICATION ERROR [None]
  - SOMNOLENCE [None]
